FAERS Safety Report 20263572 (Version 2)
Quarter: 2022Q1

REPORT INFORMATION
  Report Type: Spontaneous
  Country: US (occurrence: US)
  Receive Date: 20211231
  Receipt Date: 20220110
  Transmission Date: 20220424
  Serious: Yes (Hospitalization, Other)
  Sender: FDA-Public Use
  Company Number: US-UNITED THERAPEUTICS-UNT-2021-025896

PATIENT
  Age: 61 Year
  Sex: Male

DRUGS (5)
  1. REMODULIN [Suspect]
     Active Substance: TREPROSTINIL
     Indication: Pulmonary arterial hypertension
     Dosage: UNK, CONTINUING
     Route: 058
     Dates: start: 20181231
  2. REMODULIN [Suspect]
     Active Substance: TREPROSTINIL
     Dosage: 0.0399 ?G/KG, CONTINUING
     Route: 058
  3. REMODULIN [Suspect]
     Active Substance: TREPROSTINIL
     Dosage: 0.0444 ?G/KG, CONTINUING
     Route: 058
     Dates: start: 20190115
  4. MACITENTAN [Concomitant]
     Active Substance: MACITENTAN
     Indication: Pulmonary arterial hypertension
     Dosage: 10 MG, QD
     Route: 048
     Dates: start: 20181227
  5. MACITENTAN [Concomitant]
     Active Substance: MACITENTAN
     Dosage: 10 MG, QD
     Route: 048
     Dates: start: 20190117

REACTIONS (5)
  - Pulmonary hypertension [Unknown]
  - Dyspnoea [Unknown]
  - Swelling [Unknown]
  - Oxygen saturation decreased [Unknown]
  - Dysuria [Unknown]

NARRATIVE: CASE EVENT DATE: 20211213
